FAERS Safety Report 18069906 (Version 1)
Quarter: 2020Q3

REPORT INFORMATION
  Report Type: Spontaneous
  Country: DE (occurrence: DE)
  Receive Date: 20200727
  Receipt Date: 20200727
  Transmission Date: 20201103
  Serious: Yes (Disabling)
  Sender: FDA-Public Use
  Company Number: DE-AUROBINDO-AUR-APL-2020-035220

PATIENT
  Age: 46 Year
  Sex: Male
  Weight: 105 kg

DRUGS (4)
  1. SKILARENCE [Suspect]
     Active Substance: DIMETHYL FUMARATE
     Dosage: 30 MILLIGRAM, 3 TIMES A DAY
     Route: 065
     Dates: start: 20200520
  2. OTEZLA [Suspect]
     Active Substance: APREMILAST
     Indication: PSORIASIS
     Dosage: 30 MILLIGRAM, 3 TIMES A DAY
     Route: 048
  3. SKILARENCE [Suspect]
     Active Substance: DIMETHYL FUMARATE
     Indication: PSORIASIS
     Dosage: UNK
     Route: 065
     Dates: start: 2020
  4. RAMIPRIL. [Suspect]
     Active Substance: RAMIPRIL
     Indication: HYPERTENSION
     Dosage: 5 MILLIGRAM
     Route: 065
     Dates: start: 201911

REACTIONS (2)
  - Abdominal pain upper [Not Recovered/Not Resolved]
  - Migraine [Not Recovered/Not Resolved]

NARRATIVE: CASE EVENT DATE: 20200611
